FAERS Safety Report 5266025-1 (Version None)
Quarter: 2007Q1

REPORT INFORMATION
  Report Type: 
  Country: None (occurrence: None)
  Receive Date: 20070315
  Receipt Date: 20070307
  Transmission Date: 20070707
  Serious: Yes (Other)
  Sender: FDA-Public Use
  Company Number: US-ROCHE-486030

PATIENT
  Age: 21 Year
  Sex: Female

DRUGS (1)
  1. ACCUTANE [Suspect]
     Indication: ACNE
     Route: 065
     Dates: start: 20060705, end: 20060715

REACTIONS (5)
  - ANXIETY [None]
  - DEPRESSION [None]
  - NERVOUSNESS [None]
  - STRESS [None]
  - SUICIDAL IDEATION [None]
